FAERS Safety Report 6686348-9 (Version None)
Quarter: 2010Q2

REPORT INFORMATION
  Report Type: 
  Country: None (occurrence: None)
  Receive Date: 20100415
  Receipt Date: 20100415
  Transmission Date: 20101027
  Serious: Yes (Other)
  Sender: FDA-Public Use
  Company Number: None

PATIENT
  Sex: Female
  Weight: 81.6475 kg

DRUGS (2)
  1. LAMICTAL [Suspect]
     Indication: EPILEPSY
     Dosage: 400 MG BID PO
     Route: 048
     Dates: start: 20090301
  2. VIMPAT [Suspect]
     Dosage: 200 MG BID PO
     Route: 048

REACTIONS (1)
  - TREMOR [None]
